FAERS Safety Report 13819437 (Version 1)
Quarter: 2017Q3

REPORT INFORMATION
  Report Type: Report from Study
  Country: US (occurrence: US)
  Receive Date: 20170731
  Receipt Date: 20170731
  Transmission Date: 20171127
  Serious: No
  Sender: FDA-Public Use
  Company Number: US-EXELIXIS-CABO-17008473

PATIENT
  Sex: Female

DRUGS (8)
  1. LEVOTHYROXIN [Concomitant]
     Active Substance: LEVOTHYROXINE
  2. PRILOSEC [Concomitant]
     Active Substance: OMEPRAZOLE MAGNESIUM
  3. AMLODIPINE [Concomitant]
     Active Substance: AMLODIPINE BESYLATE
  4. CABOMETYX [Suspect]
     Active Substance: CABOZANTINIB S-MALATE
     Dosage: 40 MG, QD
     Route: 048
     Dates: start: 20170308
  5. METOPROLOL SUCCINATE. [Concomitant]
     Active Substance: METOPROLOL SUCCINATE
  6. CABOMETYX [Suspect]
     Active Substance: CABOZANTINIB S-MALATE
     Indication: RENAL CANCER
     Dosage: 60 MG, QD
     Route: 048
     Dates: start: 20161231
  7. NORCO [Concomitant]
     Active Substance: ACETAMINOPHEN\HYDROCODONE BITARTRATE
  8. LOPERAMIDE [Concomitant]
     Active Substance: LOPERAMIDE

REACTIONS (8)
  - Ageusia [Unknown]
  - Weight decreased [Unknown]
  - Alopecia [Unknown]
  - Diarrhoea [Not Recovered/Not Resolved]
  - Nausea [Unknown]
  - Asthenia [Unknown]
  - Dysphonia [Unknown]
  - Skin abrasion [Unknown]
